FAERS Safety Report 6377058-6 (Version None)
Quarter: 2009Q3

REPORT INFORMATION
  Report Type: 
  Country: None (occurrence: None)
  Receive Date: 20090925
  Receipt Date: 20090911
  Transmission Date: 20100115
  Serious: Yes (Hospitalization)
  Sender: FDA-Public Use
  Company Number: DE-MYLANLABS-2009S1016057

PATIENT
  Age: 12 Year
  Sex: Female
  Weight: 77 kg

DRUGS (1)
  1. TERBINAFINE HCL [Suspect]
     Indication: ONYCHOMYCOSIS
     Route: 048

REACTIONS (7)
  - ABNORMAL SENSATION IN EYE [None]
  - ARRHYTHMIA [None]
  - BLOOD PRESSURE FLUCTUATION [None]
  - CARDIOVASCULAR DISORDER [None]
  - DIZZINESS [None]
  - TACHYCARDIA [None]
  - VISUAL IMPAIRMENT [None]
